FAERS Safety Report 12408975 (Version 1)
Quarter: 2016Q2

REPORT INFORMATION
  Report Type: Spontaneous
  Country: FR (occurrence: FR)
  Receive Date: 20160526
  Receipt Date: 20160526
  Transmission Date: 20160815
  Serious: Yes (Death, Hospitalization, Other)
  Sender: FDA-Public Use
  Company Number: FR-MDT-ADR-2016-00955

PATIENT
  Age: 41 Year
  Sex: Female

DRUGS (5)
  1. PARACETAMOL (NGX) [Suspect]
     Active Substance: ACETAMINOPHEN
  2. DEPAMIDE (VALPROMIDE) [Suspect]
     Active Substance: VALPROMIDE
  3. SEROPLEX (ESCITALOPRM OXALATE) [Suspect]
     Active Substance: ESCITALOPRAM OXALATE
  4. DEXTROPROPOXYPHENE [Suspect]
     Active Substance: PROPOXYPHENE HYDROCHLORIDE
  5. BACLOFEN. [Suspect]
     Active Substance: BACLOFEN

REACTIONS (4)
  - Brain death [Unknown]
  - Coma [Unknown]
  - Drug screen positive [Unknown]
  - Toxicity to various agents [Unknown]
